FAERS Safety Report 20657999 (Version 1)
Quarter: 2022Q1

REPORT INFORMATION
  Report Type: Spontaneous
  Country: US (occurrence: None)
  Receive Date: 20220330
  Receipt Date: 20220330
  Transmission Date: 20220424
  Serious: Yes (Other)
  Sender: FDA-Public Use
  Company Number: None

PATIENT
  Age: 57 Year
  Sex: Female
  Weight: 85.05 kg

DRUGS (11)
  1. BUPROPION HYDROCHLORIDE [Suspect]
     Active Substance: BUPROPION HYDROCHLORIDE
     Indication: Depression
     Dosage: OTHER QUANTITY : 1 TABLET(S);?
     Route: 048
     Dates: start: 20210909, end: 20220214
  2. GABAPENTIN [Concomitant]
     Active Substance: GABAPENTIN
  3. ADDERALL [Concomitant]
     Active Substance: AMPHETAMINE ASPARTATE\AMPHETAMINE SULFATE\DEXTROAMPHETAMINE SACCHARATE\DEXTROAMPHETAMINE SULFATE
  4. PAROXETINE [Concomitant]
     Active Substance: PAROXETINE
  5. AZELASTINE [Concomitant]
     Active Substance: AZELASTINE
  6. BUDESONIDE [Concomitant]
     Active Substance: BUDESONIDE
  7. AMOXICILLIN (ONLY FOR DENTAL EXAMS [Concomitant]
  8. SPIRONOLACTONE [Concomitant]
     Active Substance: SPIRONOLACTONE
  9. FIBER GUMMIES 2 GRAM [Concomitant]
  10. IBUPROFEN [Concomitant]
     Active Substance: IBUPROFEN
  11. VITAMIN D [Concomitant]
     Active Substance: VITAMIN D NOS

REACTIONS (6)
  - Hepatotoxicity [None]
  - Alanine aminotransferase increased [None]
  - Hepatic steatosis [None]
  - Fatigue [None]
  - Aspartate aminotransferase increased [None]
  - Blood alkaline phosphatase increased [None]

NARRATIVE: CASE EVENT DATE: 20220208
